FAERS Safety Report 5505837-3 (Version None)
Quarter: 2007Q4

REPORT INFORMATION
  Report Type: 
  Country: None (occurrence: None)
  Receive Date: 20071102
  Receipt Date: 20071023
  Transmission Date: 20080405
  Serious: Yes (Hospitalization)
  Sender: FDA-Public Use
  Company Number: FR-PFIZER INC-2007089592

PATIENT
  Sex: Male

DRUGS (5)
  1. ALDACTONE [Suspect]
     Indication: CARDIAC FAILURE
     Dosage: TEXT:1 DF-FREQ:QD
     Route: 048
  2. FLUINDIONE [Suspect]
     Indication: THROMBOSIS
     Dosage: TEXT:1.25 DF
     Route: 048
  3. RAMIPRIL [Suspect]
     Indication: HYPERTENSION
     Dosage: TEXT:1 DF
     Route: 048
  4. FUROSEMIDE [Suspect]
     Indication: CARDIAC FAILURE
     Route: 048
  5. PRAVASTATIN [Suspect]
     Indication: HYPERCHOLESTEROLAEMIA
     Dosage: TEXT:1DF
     Route: 048

REACTIONS (1)
  - RECTAL HAEMORRHAGE [None]
